FAERS Safety Report 6265059-8 (Version None)
Quarter: 2009Q3

REPORT INFORMATION
  Report Type: 
  Country: None (occurrence: None)
  Receive Date: 20090713
  Receipt Date: 20090630
  Transmission Date: 20100115
  Serious: Yes (Other)
  Sender: FDA-Public Use
  Company Number: GB-PFIZER INC-2009233894

PATIENT
  Age: 66 Year

DRUGS (2)
  1. CHAMPIX [Suspect]
     Indication: SMOKING CESSATION THERAPY
     Dosage: 500 UG, 1X/DAY
     Route: 048
     Dates: start: 20090610, end: 20090611
  2. FLUCLOXACILLIN [Concomitant]
     Indication: EAR INFECTION
     Dosage: 500 MG, UNK
     Route: 048
     Dates: start: 20090605, end: 20090611

REACTIONS (3)
  - PAIN IN EXTREMITY [None]
  - PALLOR [None]
  - PARAESTHESIA [None]
